FAERS Safety Report 23132821 (Version 1)
Quarter: 2023Q4

REPORT INFORMATION
  Report Type: Spontaneous
  Country: US (occurrence: US)
  Receive Date: 20231101
  Receipt Date: 20231101
  Transmission Date: 20240109
  Serious: No
  Sender: FDA-Public Use
  Company Number: US-TARO PHARMACEUTICALS USA INC.-2023TAR00390

PATIENT

DRUGS (3)
  1. ALCLOMETASONE DIPROPIONATE [Suspect]
     Active Substance: ALCLOMETASONE DIPROPIONATE
     Indication: Rash
     Dosage: UNK, THIN LAYER, ONE APPLICATION (USED PRODUCT ONE TIME), TO BILATERAL HANDS/SPOTS ON ARMS
     Route: 061
     Dates: start: 20230329
  2. SYNTHROID [Concomitant]
     Active Substance: LEVOTHYROXINE SODIUM
     Indication: Product used for unknown indication
     Dosage: UNK
     Route: 065
  3. VITAMINS [Concomitant]
     Active Substance: VITAMINS
     Indication: Product used for unknown indication
     Dosage: UNK
     Route: 065

REACTIONS (6)
  - Rash erythematous [Recovering/Resolving]
  - Application site pruritus [Recovering/Resolving]
  - Urticaria [Recovering/Resolving]
  - Application site dryness [Recovering/Resolving]
  - Application site swelling [Recovering/Resolving]
  - Fatigue [Recovering/Resolving]

NARRATIVE: CASE EVENT DATE: 20230329
